FAERS Safety Report 18916780 (Version 1)
Quarter: 2021Q1

REPORT INFORMATION
  Report Type: Spontaneous
  Country: CL (occurrence: CL)
  Receive Date: 20210219
  Receipt Date: 20210219
  Transmission Date: 20210420
  Serious: Yes (Death)
  Sender: FDA-Public Use
  Company Number: CL-PFIZER INC-2021160883

PATIENT
  Age: 64 Year
  Sex: Female

DRUGS (6)
  1. DUROGESIC [Concomitant]
     Active Substance: FENTANYL
  2. LETROZOL [Concomitant]
     Active Substance: LETROZOLE
  3. VENLAFAXINE HCL [Suspect]
     Active Substance: VENLAFAXINE HYDROCHLORIDE
  4. DULOXETINE. [Concomitant]
     Active Substance: DULOXETINE
  5. DOMPERIDONA [Concomitant]
     Active Substance: DOMPERIDONE
  6. PREGABALINA [Concomitant]
     Active Substance: PREGABALIN

REACTIONS (1)
  - Cardiac failure [Fatal]
